FAERS Safety Report 24216036 (Version 1)
Quarter: 2024Q3

REPORT INFORMATION
  Report Type: Spontaneous
  Country: US (occurrence: US)
  Receive Date: 20240816
  Receipt Date: 20240816
  Transmission Date: 20241017
  Serious: No
  Sender: STRIDES
  Company Number: US-STRIDES ARCOLAB LIMITED-2024SP006575

PATIENT
  Age: 61 Year
  Sex: Male

DRUGS (2)
  1. CYCLOSPORINE [Suspect]
     Active Substance: CYCLOSPORINE
     Indication: Product used for unknown indication
     Dosage: UNK, (CAPSULE), 25MG, GTIN: 00323155837308, SN:  CZ30KTRDDPM6
     Route: 065
     Dates: start: 2024
  2. CYCLOSPORINE [Suspect]
     Active Substance: CYCLOSPORINE
     Dosage: UNK, (CAPSULE), 100MG, GTIN: 00323155839302, SN:  DTSWM8D2D6RX
     Route: 065
     Dates: start: 2024

REACTIONS (5)
  - Product dose omission issue [Unknown]
  - Product packaging difficult to open [Unknown]
  - Product adhesion issue [Unknown]
  - Product tampering [Unknown]
  - Product quality issue [Unknown]
